FAERS Safety Report 13589702 (Version 8)
Quarter: 2018Q2

REPORT INFORMATION
  Report Type: Report from Study
  Country: IT (occurrence: IT)
  Receive Date: 20170530
  Receipt Date: 20180612
  Transmission Date: 20180711
  Serious: Yes (Life-Threatening, Hospitalization)
  Sender: FDA-Public Use
  Company Number: IT-CELGENEUS-ITA-20170508267

PATIENT
  Age: 77 Year
  Sex: Male
  Weight: 75 kg

DRUGS (13)
  1. ABRAXANE [Suspect]
     Active Substance: PACLITAXEL
     Indication: NON-SMALL CELL LUNG CANCER
     Dosage: 100 MG/SQ.METER
     Route: 041
     Dates: start: 20170410, end: 20170428
  2. BECLOMETASONE DIPROPIONATO [Concomitant]
     Indication: COUGH
     Route: 055
     Dates: start: 20170320
  3. FONDAPARINUX SODICO [Concomitant]
     Indication: PROPHYLAXIS
     Dosage: 5 MG
     Route: 048
     Dates: start: 20170327
  4. ABRAXANE [Suspect]
     Active Substance: PACLITAXEL
     Dosage: 100 MG/SQ.METER
     Route: 041
     Dates: start: 20170504, end: 20170504
  5. CARBOPLATIN. [Suspect]
     Active Substance: CARBOPLATIN
     Indication: NON-SMALL CELL LUNG CANCER
     Dosage: 6 MG/ML/DAY  AUC
     Route: 065
     Dates: start: 20170504, end: 20170504
  6. ABRAXANE [Suspect]
     Active Substance: PACLITAXEL
     Dosage: 100 MG/SQ.METER
     Route: 041
     Dates: end: 20170529
  7. CARBOPLATIN. [Suspect]
     Active Substance: CARBOPLATIN
     Dosage: 6 MG/M2  AUC
     Route: 065
     Dates: end: 20170529
  8. BREVA AEROSOL [Concomitant]
     Indication: COUGH
     Route: 055
     Dates: start: 20170320
  9. VERAPAMIL CLORIDRATO [Concomitant]
     Indication: ATRIAL FIBRILLATION
     Dosage: 360 MILLIGRAM
     Route: 048
     Dates: start: 2008
  10. GLICOPIRRONIO BROMURO [Concomitant]
     Indication: CHRONIC OBSTRUCTIVE PULMONARY DISEASE
     Dosage: 110 UG
     Route: 055
     Dates: start: 20170203
  11. CARBOPLATIN. [Suspect]
     Active Substance: CARBOPLATIN
     Dosage: 6 MG/M2  AUC
     Route: 065
     Dates: start: 20170410, end: 20170428
  12. LANSOPRAZOLO [Concomitant]
     Active Substance: LANSOPRAZOLE
     Indication: PROPHYLAXIS
     Dosage: 30 MG
     Route: 048
     Dates: start: 2014
  13. G-CSF [Concomitant]
     Active Substance: GRANULOCYTE COLONY-STIMULATING FACTOR NOS
     Indication: NEUTROPHIL COUNT DECREASED
     Dosage: 30000 IU
     Route: 058
     Dates: start: 20170505, end: 20170508

REACTIONS (7)
  - Febrile neutropenia [Recovered/Resolved]
  - Neutrophil count decreased [Recovered/Resolved]
  - Pneumonitis [Recovered/Resolved]
  - Leukopenia [Recovered/Resolved]
  - Diarrhoea [Recovered/Resolved]
  - Sepsis [Recovered/Resolved]
  - Syncope [Recovered/Resolved]

NARRATIVE: CASE EVENT DATE: 20170510
